FAERS Safety Report 6391806-0 (Version None)
Quarter: 2009Q4

REPORT INFORMATION
  Report Type: 
  Country: None (occurrence: None)
  Receive Date: 20091007
  Receipt Date: 20090211
  Transmission Date: 20100525
  Serious: No
  Sender: FDA-Public Use
  Company Number: US-ASTRAZENECA-2009UW03929

PATIENT
  Age: 14587 Day
  Sex: Male

DRUGS (1)
  1. SEROQUEL [Suspect]
     Dosage: UNKNOWN
     Route: 048
     Dates: start: 20000211

REACTIONS (2)
  - NASOPHARYNGITIS [None]
  - OROPHARYNGEAL PAIN [None]
